FAERS Safety Report 18564676 (Version 1)
Quarter: 2020Q4

REPORT INFORMATION
  Report Type: Spontaneous
  Country: US (occurrence: US)
  Receive Date: 20201130
  Receipt Date: 20201130
  Transmission Date: 20210114
  Serious: No
  Sender: FDA-Public Use
  Company Number: None

PATIENT
  Age: 18 Year
  Sex: Female
  Weight: 51.75 kg

DRUGS (7)
  1. VITAMIN D [Concomitant]
     Active Substance: VITAMIN D NOS
  2. MICROGESTIN BIRTH CONTROL [Concomitant]
  3. VANCOMYCIN [Suspect]
     Active Substance: VANCOMYCIN
     Indication: CLOSTRIDIUM DIFFICILE INFECTION
     Route: 048
     Dates: start: 20200713, end: 20200730
  4. ASHWAAGANDHA SUPPLEMENT [Concomitant]
  5. VSL #3 PROBIOTIC [Concomitant]
  6. SWANSON MULTI STRAIN PROBIOTIC [Concomitant]
  7. ALIGN PROBIOTIC [Concomitant]

REACTIONS (3)
  - Gait disturbance [None]
  - Grip strength decreased [None]
  - Arthralgia [None]

NARRATIVE: CASE EVENT DATE: 20200716
